FAERS Safety Report 14974846 (Version 1)
Quarter: 2018Q2

REPORT INFORMATION
  Report Type: Spontaneous
  Country: US (occurrence: US)
  Receive Date: 20180514
  Receipt Date: 20180514
  Transmission Date: 20180711
  Serious: No
  Sender: FDA-Public Use
  Company Number: None

PATIENT
  Age: 64 Year
  Sex: Female

DRUGS (1)
  1. REMICADE [Suspect]
     Active Substance: INFLIXIMAB
     Route: 042
     Dates: start: 20180306

REACTIONS (5)
  - Hypersensitivity [None]
  - Feeding disorder [None]
  - Skin discolouration [None]
  - Arthritis [None]
  - Pain [None]

NARRATIVE: CASE EVENT DATE: 20180511
